FAERS Safety Report 17332426 (Version 1)
Quarter: 2020Q1

REPORT INFORMATION
  Report Type: Spontaneous
  Country: IT (occurrence: IT)
  Receive Date: 20200127
  Receipt Date: 20200127
  Transmission Date: 20200409
  Serious: Yes (Other)
  Sender: FDA-Public Use
  Company Number: IT-SUN PHARMACEUTICAL INDUSTRIES LTD-2020RR-234516

PATIENT
  Age: 18 Year
  Sex: Female

DRUGS (4)
  1. GEMCITABINE. [Suspect]
     Active Substance: GEMCITABINE
     Dosage: UNK
     Route: 065
     Dates: start: 201710
  2. DOXORUBICIN [Suspect]
     Active Substance: DOXORUBICIN
     Indication: ANGIOSARCOMA METASTATIC
     Dosage: ON DAY 1-3 EVERY 21 DAYS
     Route: 065
     Dates: start: 201111, end: 201112
  3. GEMCITABINE. [Suspect]
     Active Substance: GEMCITABINE
     Indication: ANGIOSARCOMA RECURRENT
     Dosage: ON DAYS 1, 8 EVERY 21 DAYS FOR 6 CYCLES
     Route: 065
     Dates: start: 201309
  4. IFOSFAMIDE. [Suspect]
     Active Substance: IFOSFAMIDE
     Indication: ANGIOSARCOMA METASTATIC
     Dosage: 1 G/SQ. METER/DAY, ON DAY 1-3 EVERY 21 DAYS
     Route: 065
     Dates: start: 201111, end: 201112

REACTIONS (5)
  - Angiosarcoma recurrent [Unknown]
  - Disease progression [Unknown]
  - Therapeutic product effect incomplete [Unknown]
  - Disease progression [Unknown]
  - Menstruation irregular [Recovered/Resolved]

NARRATIVE: CASE EVENT DATE: 201111
